FAERS Safety Report 22893697 (Version 3)
Quarter: 2023Q4

REPORT INFORMATION
  Report Type: Spontaneous
  Country: US (occurrence: US)
  Receive Date: 20230901
  Receipt Date: 20231025
  Transmission Date: 20240110
  Serious: No
  Sender: FDA-Public Use
  Company Number: US-BIOGEN-2023BI01223769

PATIENT
  Sex: Female

DRUGS (2)
  1. VUMERITY [Suspect]
     Active Substance: DIROXIMEL FUMARATE
     Indication: Multiple sclerosis
     Dosage: 231 MG TWICE A DAY, ORALLY, FOR 7 DAYS
     Route: 050
     Dates: start: 20230822
  2. VUMERITY [Suspect]
     Active Substance: DIROXIMEL FUMARATE
     Dosage: THEN MAINTENANCE DOSE: 462 MG (ADMINISTERED AS TWO 231?MG CAPSULES) TWICE A DAY, ORAL
     Route: 050

REACTIONS (2)
  - Seasonal allergy [Unknown]
  - Hot flush [Recovered/Resolved]

NARRATIVE: CASE EVENT DATE: 20230101
